FAERS Safety Report 9701469 (Version 1)
Quarter: 2013Q4

REPORT INFORMATION
  Report Type: Spontaneous
  Country: US (occurrence: US)
  Receive Date: 20131121
  Receipt Date: 20131121
  Transmission Date: 20140711
  Serious: No
  Sender: FDA-Public Use
  Company Number: US-MYLANLABS-2013S1002224

PATIENT
  Age: 70 Year
  Sex: Female

DRUGS (6)
  1. FUROSEMIDE TABLETS, USP [Suspect]
     Indication: HYPERTENSION
     Route: 048
     Dates: start: 20121219, end: 20130115
  2. COZAAR [Concomitant]
  3. METFORMIN [Concomitant]
  4. LEVOTHYROXINE [Concomitant]
  5. PRAVASTATIN [Concomitant]
  6. OMEPRAZOLE [Concomitant]

REACTIONS (2)
  - Drug ineffective [Recovered/Resolved]
  - Oedema [Recovered/Resolved]
